FAERS Safety Report 12900630 (Version 1)
Quarter: 2016Q4

REPORT INFORMATION
  Report Type: Spontaneous
  Country: US (occurrence: US)
  Receive Date: 20161101
  Receipt Date: 20161101
  Transmission Date: 20170207
  Serious: Yes (Other)
  Sender: FDA-Public Use
  Company Number: US-PFIZER INC-2016502885

PATIENT
  Age: 9 Year

DRUGS (1)
  1. METHOTREXATE SODIUM. [Suspect]
     Active Substance: METHOTREXATE SODIUM
     Dosage: 650 MG, UNK
     Route: 037

REACTIONS (2)
  - Overdose [Unknown]
  - Neurotoxicity [Unknown]
